FAERS Safety Report 19771968 (Version 3)
Quarter: 2021Q4

REPORT INFORMATION
  Report Type: Spontaneous
  Country: US (occurrence: US)
  Receive Date: 20210831
  Receipt Date: 20211005
  Transmission Date: 20220303
  Serious: No
  Sender: FDA-Public Use
  Company Number: 2021A679363

PATIENT
  Sex: Female

DRUGS (1)
  1. BYDUREON BCISE [Suspect]
     Active Substance: EXENATIDE
     Indication: Type 2 diabetes mellitus
     Route: 058

REACTIONS (5)
  - Blood cholesterol increased [Unknown]
  - Hypertension [Unknown]
  - Device malfunction [Unknown]
  - Product dose omission issue [Unknown]
  - Incorrect dose administered by device [Unknown]
